FAERS Safety Report 10095021 (Version 1)
Quarter: 2014Q2

REPORT INFORMATION
  Report Type: Spontaneous
  Country: CN (occurrence: CN)
  Receive Date: 20140422
  Receipt Date: 20140422
  Transmission Date: 20141212
  Serious: Yes (Hospitalization)
  Sender: FDA-Public Use
  Company Number: CN-SA-2014SA050073

PATIENT
  Age: 58 Year
  Sex: Male

DRUGS (3)
  1. CORDARONE [Suspect]
     Indication: CARDIAC DISORDER
     Route: 048
     Dates: start: 20130301, end: 20130407
  2. PLAVIX [Suspect]
     Indication: PRODUCT USED FOR UNKNOWN INDICATION
     Route: 065
  3. CRESTOR [Suspect]
     Indication: PROPHYLAXIS
     Route: 065
     Dates: start: 201302

REACTIONS (2)
  - Renal impairment [Recovering/Resolving]
  - Hepatic function abnormal [Recovering/Resolving]
